FAERS Safety Report 10912225 (Version 1)
Quarter: 2015Q1

REPORT INFORMATION
  Report Type: Spontaneous
  Country: DE (occurrence: None)
  Receive Date: 20150309
  Receipt Date: 20150309
  Transmission Date: 20150721
  Serious: Yes (Other)
  Sender: FDA-Public Use
  Company Number: 2014-20946

PATIENT
  Age: 73 Year
  Sex: Female
  Weight: 70 kg

DRUGS (2)
  1. EYLEA [Suspect]
     Active Substance: AFLIBERCEPT
     Indication: RETINAL VEIN THROMBOSIS
     Dosage: SINGLE
     Route: 031
     Dates: start: 20141107, end: 20141107
  2. GLAUPAX (ACETAZOLAMIDE) [Concomitant]

REACTIONS (2)
  - Angina pectoris [None]
  - Cardiovascular disorder [None]

NARRATIVE: CASE EVENT DATE: 20141107
